FAERS Safety Report 10748253 (Version 1)
Quarter: 2015Q1

REPORT INFORMATION
  Report Type: Spontaneous
  Country: US (occurrence: None)
  Receive Date: 20150120
  Receipt Date: 20150120
  Transmission Date: 20150721
  Serious: No
  Sender: FDA-Public Use
  Company Number: AEGR001044

PATIENT
  Age: 59 Year
  Sex: Female
  Weight: 76.2 kg

DRUGS (8)
  1. JUXTAPID [Suspect]
     Active Substance: LOMITAPIDE MESYLATE
     Indication: TYPE IIA HYPERLIPIDAEMIA
     Route: 048
     Dates: start: 20140821, end: 20141215
  2. MULTIVITAMIN (VITAMINS NOS) [Concomitant]
     Active Substance: VITAMINS
  3. OMEGA 3 6 9 (OMEGA 9 FATTY ACIDS, OMEGA-3 FATTY ACIDS, OMEGA-6 FATTY ACIDS) [Concomitant]
  4. VITAMIN E (TOCOPHERYL ACETATE) [Concomitant]
  5. METAMUCIL (PLANTAGO OVATA) [Concomitant]
  6. CALCIUM +D (CALCIUM CARBONATE, COLECALCIFEROL) [Concomitant]
  7. FOSAMAX [Concomitant]
     Active Substance: ALENDRONATE SODIUM
  8. BARACLUDE (ENTECAVIR) [Concomitant]
     Active Substance: ENTECAVIR

REACTIONS (2)
  - Drug ineffective [None]
  - Therapy cessation [None]

NARRATIVE: CASE EVENT DATE: 20141215
